FAERS Safety Report 4319903-1 (Version None)
Quarter: 2004Q1

REPORT INFORMATION
  Report Type: 
  Country: None (occurrence: None)
  Receive Date: 20040316
  Receipt Date: 20040304
  Transmission Date: 20041129
  Serious: Yes (Hospitalization)
  Sender: FDA-Public Use
  Company Number: NSADSS2003020950

PATIENT
  Age: 70 Year
  Sex: Female
  Weight: 58.514 kg

DRUGS (11)
  1. REMICADE [Suspect]
     Indication: RHEUMATOID ARTHRITIS
     Dosage: 5 MG/KG, INTRAVENOUS; 5 MG/KG, INTRAVENOUS; INTRAVENOUS
     Route: 042
     Dates: start: 20001219
  2. REMICADE [Suspect]
     Indication: RHEUMATOID ARTHRITIS
     Dosage: 5 MG/KG, INTRAVENOUS; 5 MG/KG, INTRAVENOUS; INTRAVENOUS
     Route: 042
     Dates: start: 20021212
  3. REMICADE [Suspect]
     Indication: RHEUMATOID ARTHRITIS
     Dosage: 5 MG/KG, INTRAVENOUS; 5 MG/KG, INTRAVENOUS; INTRAVENOUS
     Route: 042
     Dates: start: 20030101
  4. PREDNISONE [Concomitant]
  5. ARAVA [Concomitant]
  6. HYDROXYZINE (HYDROZYZINE) [Concomitant]
  7. VITAMINS (VITAMINS) [Concomitant]
  8. OXYCONTIN [Concomitant]
  9. NEXIUM [Concomitant]
  10. DIPHENHYDRAMINE HCL [Concomitant]
  11. AMBIEN [Concomitant]

REACTIONS (39)
  - ANAEMIA OF CHRONIC DISEASE [None]
  - ANOREXIA [None]
  - ARTERIAL FIBROSIS [None]
  - BACK PAIN [None]
  - BLOOD SODIUM DECREASED [None]
  - BRONCHIECTASIS [None]
  - CHEST PAIN [None]
  - CHILLS [None]
  - CORONARY ARTERY DISEASE [None]
  - DIZZINESS [None]
  - ECZEMA [None]
  - FIBRIN D DIMER INCREASED [None]
  - FOLLICULITIS [None]
  - GASTROINTESTINAL DISORDER [None]
  - HEADACHE [None]
  - HYPERHIDROSIS [None]
  - HYPERLIPIDAEMIA [None]
  - HYPERTENSION [None]
  - HYPOXIA [None]
  - LUNG INFILTRATION [None]
  - NAUSEA [None]
  - PARAESTHESIA [None]
  - PCO2 DECREASED [None]
  - PERICARDIAL EFFUSION [None]
  - PERICARDITIS [None]
  - PLEURITIC PAIN [None]
  - PNEUMONIA [None]
  - PNEUMONITIS [None]
  - POLYURIA [None]
  - PRODUCTIVE COUGH [None]
  - PROTEIN TOTAL INCREASED [None]
  - PULMONARY FIBROSIS [None]
  - RASH PRURITIC [None]
  - SENSORY DISTURBANCE [None]
  - SKIN ULCER [None]
  - VOMITING [None]
  - WEIGHT DECREASED [None]
  - WEIGHT INCREASED [None]
  - WHITE BLOOD CELL COUNT ABNORMAL [None]
